FAERS Safety Report 18232795 (Version 1)
Quarter: 2020Q3

REPORT INFORMATION
  Report Type: Spontaneous
  Country: DE (occurrence: DE)
  Receive Date: 20200904
  Receipt Date: 20200904
  Transmission Date: 20201103
  Serious: Yes (Other)
  Sender: FDA-Public Use
  Company Number: DE-ASTRAZENECA-2020SF09658

PATIENT
  Age: 36 Year
  Sex: Female
  Weight: 120 kg

DRUGS (1)
  1. ESOMEPRAZOL [Suspect]
     Active Substance: ESOMEPRAZOLE
     Indication: ABDOMINAL PAIN UPPER
     Route: 048
     Dates: start: 20200601, end: 20200823

REACTIONS (11)
  - Alopecia [Unknown]
  - Visual impairment [Unknown]
  - Arrhythmia [Not Recovered/Not Resolved]
  - Muscle spasms [Unknown]
  - Insomnia [Unknown]
  - Dry mouth [Unknown]
  - Sleep disorder [Unknown]
  - Palpitations [Not Recovered/Not Resolved]
  - Crying [Unknown]
  - Hyperhidrosis [Unknown]
  - Magnesium deficiency [Unknown]

NARRATIVE: CASE EVENT DATE: 2020
